FAERS Safety Report 5400428-7 (Version None)
Quarter: 2007Q3

REPORT INFORMATION
  Report Type: 
  Country: None (occurrence: None)
  Receive Date: 20070730
  Receipt Date: 20070727
  Transmission Date: 20080115
  Serious: Yes (Other)
  Sender: FDA-Public Use
  Company Number: B0480865A

PATIENT
  Age: 39 Year
  Sex: Male

DRUGS (8)
  1. PAXIL [Suspect]
     Indication: DEPRESSION
     Route: 048
     Dates: start: 20061001, end: 20070706
  2. DEPAS [Concomitant]
     Route: 048
     Dates: start: 20061001
  3. ZYPREXA [Concomitant]
     Route: 048
     Dates: start: 20061001
  4. HALCION [Concomitant]
     Route: 048
     Dates: start: 20061001
  5. ROHYPNOL [Concomitant]
     Route: 065
     Dates: start: 20061001
  6. LEVOTOMIN [Concomitant]
     Route: 065
     Dates: start: 20061001
  7. ZYPREXA [Concomitant]
     Route: 048
  8. TOLEDOMIN [Concomitant]
     Route: 048

REACTIONS (1)
  - SUICIDAL IDEATION [None]
